FAERS Safety Report 22650538 (Version 1)
Quarter: 2023Q2

REPORT INFORMATION
  Report Type: Spontaneous
  Country: US (occurrence: None)
  Receive Date: 20230627
  Receipt Date: 20230627
  Transmission Date: 20230722
  Serious: Yes (Other)
  Sender: FDA-Public Use
  Company Number: None

PATIENT
  Age: 55 Year
  Sex: Female
  Weight: 43.2 kg

DRUGS (1)
  1. INFED [Suspect]
     Active Substance: IRON DEXTRAN
     Indication: Anaemia
     Dosage: FREQUENCY : DAILY;?
     Route: 042

REACTIONS (3)
  - Chest discomfort [None]
  - Dizziness [None]
  - Feeling hot [None]

NARRATIVE: CASE EVENT DATE: 20230509
